FAERS Safety Report 14126591 (Version 13)
Quarter: 2020Q2

REPORT INFORMATION
  Report Type: Report from Study
  Country: US (occurrence: US)
  Receive Date: 20171025
  Receipt Date: 20200521
  Transmission Date: 20200713
  Serious: Yes (Other)
  Sender: FDA-Public Use
  Company Number: US-ACTELION-A-US2014-110352

PATIENT
  Age: 69 Year
  Sex: Female
  Weight: 49.89 kg

DRUGS (16)
  1. VENTAVIS [Suspect]
     Active Substance: ILOPROST
     Dosage: 5 MCG, 6 X/DAY
     Route: 055
  2. UPTRAVI [Suspect]
     Active Substance: SELEXIPAG
     Dosage: UNK
     Route: 048
  3. ORENITRAM [Suspect]
     Active Substance: TREPROSTINIL
     Indication: PULMONARY HYPERTENSION
     Dosage: 2.0 MG, BID
     Route: 065
  4. ORENITRAM [Suspect]
     Active Substance: TREPROSTINIL
     Dosage: 1.5 MG, BID
     Route: 048
  5. ORENITRAM [Suspect]
     Active Substance: TREPROSTINIL
     Dosage: 1. 5MGAM, 0.75 MG AFTERNOON,1.5 MG PM
     Route: 048
  6. VENTAVIS [Suspect]
     Active Substance: ILOPROST
     Dosage: UNK
     Route: 055
  7. ADCIRCA [Concomitant]
     Active Substance: TADALAFIL
  8. VENTAVIS [Suspect]
     Active Substance: ILOPROST
     Dosage: 5 MCG, 6-9X/DAY
     Route: 055
     Dates: start: 20120412
  9. UPTRAVI [Suspect]
     Active Substance: SELEXIPAG
     Indication: PULMONARY HYPERTENSION
     Dosage: 800 MCG, BID
     Route: 048
  10. VENTAVIS [Suspect]
     Active Substance: ILOPROST
     Indication: PULMONARY HYPERTENSION
     Dosage: 5 MCG, 6-9X/DAY
     Route: 055
     Dates: start: 20120412
  11. ORENITRAM [Suspect]
     Active Substance: TREPROSTINIL
     Dosage: 1 MG, BID
     Route: 048
     Dates: start: 20170601
  12. LETAIRIS [Suspect]
     Active Substance: AMBRISENTAN
     Indication: PRODUCT USED FOR UNKNOWN INDICATION
     Dosage: 10 MG, QD
     Route: 065
     Dates: start: 20120413
  13. ORENITRAM [Suspect]
     Active Substance: TREPROSTINIL
     Dosage: 1.75 MG, BID
     Route: 065
  14. VENTAVIS [Suspect]
     Active Substance: ILOPROST
     Dosage: 5 MCG, 6 X/DAY
     Route: 055
  15. UPTRAVI [Suspect]
     Active Substance: SELEXIPAG
     Dosage: 600 MCG, BID
     Route: 048
  16. AMLODIPINE [Concomitant]
     Active Substance: AMLODIPINE BESYLATE

REACTIONS (39)
  - Dizziness [Unknown]
  - Pain in extremity [Unknown]
  - Balance disorder [Unknown]
  - Bronchitis [Unknown]
  - Myalgia [Unknown]
  - Nausea [Unknown]
  - Pulmonary hypertension [Unknown]
  - Unevaluable event [Unknown]
  - Bone pain [Unknown]
  - Pain in jaw [Unknown]
  - Vascular pain [Unknown]
  - Pain [Unknown]
  - Headache [Unknown]
  - Arthralgia [Unknown]
  - Hypotension [Unknown]
  - Infection [Recovered/Resolved]
  - Haemoptysis [Unknown]
  - Dizziness exertional [Not Recovered/Not Resolved]
  - Vomiting [Unknown]
  - Insomnia [Unknown]
  - Abdominal discomfort [Unknown]
  - Hypoaesthesia [Unknown]
  - Influenza [Unknown]
  - Nasopharyngitis [Unknown]
  - Feeling abnormal [Unknown]
  - Condition aggravated [Unknown]
  - Malaise [Unknown]
  - Adverse event [Unknown]
  - Back pain [Unknown]
  - Weight decreased [Unknown]
  - Oropharyngeal pain [Unknown]
  - Dyspnoea exertional [Unknown]
  - Groin pain [Not Recovered/Not Resolved]
  - Varicose vein [Unknown]
  - Musculoskeletal pain [Unknown]
  - Flushing [Unknown]
  - Dyspnoea [Unknown]
  - Neck pain [Unknown]
  - Pruritus [Unknown]

NARRATIVE: CASE EVENT DATE: 20160131
